FAERS Safety Report 12611354 (Version 1)
Quarter: 2016Q3

REPORT INFORMATION
  Report Type: Spontaneous
  Country: US (occurrence: US)
  Receive Date: 20160801
  Receipt Date: 20160801
  Transmission Date: 20161109
  Serious: Yes (Other)
  Sender: FDA-Public Use
  Company Number: US-FRESENIUS KABI-FK201604904

PATIENT
  Age: 64 Year
  Sex: Male
  Weight: 115.67 kg

DRUGS (5)
  1. DEPO-MEDROL [Suspect]
     Active Substance: METHYLPREDNISOLONE ACETATE
     Indication: TRAUMATIC ARTHROPATHY
     Route: 014
     Dates: start: 20160722
  2. BUPIVACAINE HOSPIRA [Suspect]
     Active Substance: BUPIVACAINE
     Indication: TRAUMATIC ARTHROPATHY
     Route: 014
     Dates: start: 20160722
  3. DEXAMETHASONE SODIUM PHOSPHATE INJECTION, USP [Suspect]
     Active Substance: DEXAMETHASONE SODIUM PHOSPHATE
     Indication: TRAUMATIC ARTHROPATHY
     Route: 014
     Dates: start: 20160722
  4. LIDOCAINE HOSPIRA [Suspect]
     Active Substance: LIDOCAINE
     Indication: TRAUMATIC ARTHROPATHY
     Route: 014
     Dates: start: 20160722
  5. METFORMIN [Concomitant]
     Active Substance: METFORMIN HYDROCHLORIDE
     Indication: DIABETES MELLITUS
     Route: 065

REACTIONS (2)
  - Arthralgia [Not Recovered/Not Resolved]
  - Joint swelling [Not Recovered/Not Resolved]

NARRATIVE: CASE EVENT DATE: 20160725
